FAERS Safety Report 7966550-6 (Version None)
Quarter: 2011Q4

REPORT INFORMATION
  Report Type: 
  Country: None (occurrence: None)
  Receive Date: 20111208
  Receipt Date: 20111123
  Transmission Date: 20120403
  Serious: Yes (Death, Hospitalization)
  Sender: FDA-Public Use
  Company Number: US-BRISTOL-MYERS SQUIBB COMPANY-16257479

PATIENT
  Age: 64 Year
  Sex: Male
  Weight: 69 kg

DRUGS (9)
  1. LEVOTHYROXINE SODIUM [Concomitant]
  2. RAMUCIRUMAB [Suspect]
     Indication: COLORECTAL CANCER
     Dosage: ROA:IV,EVERY 2 WEEKS
     Route: 065
     Dates: start: 20110920, end: 20111025
  3. MEGESTROL ACETATE [Concomitant]
  4. MAGNESIUM HYDROXIDE [Concomitant]
  5. CETUXIMAB [Suspect]
     Indication: COLORECTAL CANCER
     Dosage: VIAL,ROA:IV,EVERY 2 WEEKS
     Route: 065
     Dates: start: 20110920, end: 20111025
  6. ONDANSETRON HYDROCHLORIDE [Concomitant]
  7. IRINOTECAN HCL [Suspect]
     Indication: COLORECTAL CANCER
     Dosage: ROA:IV,EVERY 2 WEEKS
     Route: 065
     Dates: start: 20110920, end: 20111025
  8. ERGOCALCIFEROL [Concomitant]
  9. POTASSIUM ACETATE [Concomitant]

REACTIONS (5)
  - LARGE INTESTINE PERFORATION [None]
  - DEHYDRATION [None]
  - HEPATIC FAILURE [None]
  - DECREASED APPETITE [None]
  - ASCITES [None]
